FAERS Safety Report 10080844 (Version 5)
Quarter: 2014Q2

REPORT INFORMATION
  Report Type: Report from Study
  Country: JP (occurrence: JP)
  Receive Date: 20140416
  Receipt Date: 20140623
  Transmission Date: 20141212
  Serious: Yes (Life-Threatening, Hospitalization)
  Sender: FDA-Public Use
  Company Number: JP-ROCHE-1383315

PATIENT
  Age: 47 Year
  Sex: Female
  Weight: 76.6 kg

DRUGS (7)
  1. TRASTUZUMAB EMTANSINE [Suspect]
     Indication: BREAST CANCER METASTATIC
     Route: 042
     Dates: start: 20140304, end: 20140325
  2. OXYCONTIN [Concomitant]
     Indication: CANCER PAIN
     Route: 048
  3. CALONAL [Concomitant]
     Indication: CANCER PAIN
     Route: 048
  4. LENDORMIN D [Concomitant]
     Indication: INSOMNIA
     Route: 048
     Dates: start: 20140307, end: 20140410
  5. SANCOBA [Concomitant]
     Indication: ASTHENOPIA
     Dosage: FORM:EED
     Route: 047
     Dates: start: 20140318, end: 20140411
  6. PATANOL [Concomitant]
     Indication: SEASONAL ALLERGY
     Dosage: FORM:EED
     Route: 047
     Dates: start: 20140318, end: 20140411
  7. FLUOROMETHOLONE [Concomitant]
     Indication: SEASONAL ALLERGY
     Route: 047
     Dates: start: 20140401, end: 20140411

REACTIONS (1)
  - Ventricular fibrillation [Recovering/Resolving]
